FAERS Safety Report 9909806 (Version 2)
Quarter: 2014Q1

REPORT INFORMATION
  Report Type: Spontaneous
  Country: US (occurrence: None)
  Receive Date: 20140212
  Receipt Date: 20140221
  Transmission Date: 20141002
  Serious: Yes (Hospitalization)
  Sender: FDA-Public Use
  Company Number: 7267534

PATIENT
  Age: 81 Year
  Sex: Female

DRUGS (9)
  1. LEVOTHYROXINE (LEVOTHYROXINE) [Suspect]
     Indication: PRODUCT USED FOR UNKNOWN INDICATION
  2. FUROSEMIDE (FUROSEMIDE) [Suspect]
     Indication: LOCAL SWELLING
  3. ASPIRIN /00002701/ (ACETYLSALICYLIC ACID) [Concomitant]
  4. CLOPIDOGREL (CLOPIDOGREL) [Concomitant]
  5. AMLODIPINE (AMLODIPINE) [Concomitant]
  6. EZETIMIBE (EZETIMIBE) [Concomitant]
  7. NIACIN (NICOTINIC ACID) [Concomitant]
  8. PANTOPRAZOLE (PANTOPRAZOLE) [Concomitant]
  9. COLECALCIFEROL (COLECALCIFEROL) [Concomitant]

REACTIONS (1)
  - Pancreatitis [None]
